FAERS Safety Report 9148306 (Version 1)
Quarter: 2013Q1

REPORT INFORMATION
  Report Type: Spontaneous
  Country: US (occurrence: None)
  Receive Date: 20130228
  Receipt Date: 20130228
  Transmission Date: 20140127
  Serious: Yes (Life-Threatening)
  Sender: FDA-Public Use
  Company Number: None

PATIENT
  Age: 58 Year
  Sex: Female
  Weight: 56.7 kg

DRUGS (1)
  1. AVELOX/MOXIFLOXACIN [Suspect]
     Indication: SINUSITIS
     Dates: start: 20121226, end: 20121226

REACTIONS (10)
  - Urticaria [None]
  - Tongue pruritus [None]
  - Oral pruritus [None]
  - Diarrhoea [None]
  - Loss of consciousness [None]
  - Visual impairment [None]
  - Hyperhidrosis [None]
  - Feeling cold [None]
  - Tremor [None]
  - Erythema [None]
